FAERS Safety Report 4644976-6 (Version None)
Quarter: 2005Q2

REPORT INFORMATION
  Report Type: 
  Country: None (occurrence: None)
  Receive Date: 20050422
  Receipt Date: 20050410
  Transmission Date: 20051028
  Serious: Yes (Hospitalization)
  Sender: FDA-Public Use
  Company Number: 2005057528

PATIENT
  Sex: Female
  Weight: 62.5964 kg

DRUGS (2)
  1. BEXTRA [Suspect]
     Indication: ILL-DEFINED DISORDER
     Dates: start: 20030101
  2. ASPIRIN [Concomitant]
     Indication: ILL-DEFINED DISORDER

REACTIONS (4)
  - EYE DISORDER [None]
  - HAEMORRHAGE [None]
  - MENORRHAGIA [None]
  - SKIN DISCOLOURATION [None]
